FAERS Safety Report 25873476 (Version 3)
Quarter: 2025Q4

REPORT INFORMATION
  Report Type: Spontaneous
  Country: US (occurrence: US)
  Receive Date: 20251002
  Receipt Date: 20251104
  Transmission Date: 20260117
  Serious: Yes (Hospitalization)
  Sender: PFIZER
  Company Number: US-PFIZER INC-202500194855

PATIENT
  Age: 53 Year
  Sex: Female

DRUGS (5)
  1. IBRANCE [Suspect]
     Active Substance: PALBOCICLIB
     Indication: Breast cancer female
     Dosage: TAKE ONE CAPSULE (100 MG) BY MOUTH ONCE DAILY FOR 21 DAYS/ 7 DAYS OFF
     Route: 048
     Dates: start: 20250812
  2. IBRANCE [Suspect]
     Active Substance: PALBOCICLIB
     Dosage: 100MG DAILY 21
     Dates: start: 20250909, end: 20250920
  3. ITOVEBI [Suspect]
     Active Substance: INAVOLISIB
     Indication: Breast cancer female
     Dosage: UNK
     Dates: start: 20250812
  4. ITOVEBI [Suspect]
     Active Substance: INAVOLISIB
     Dosage: UNK
     Dates: start: 20250909, end: 20250920
  5. ITOVEBI [Suspect]
     Active Substance: INAVOLISIB
     Dosage: UNK
     Dates: end: 20251010

REACTIONS (7)
  - Diarrhoea [Recovering/Resolving]
  - Nausea [Recovering/Resolving]
  - Vomiting [Recovering/Resolving]
  - Taste disorder [Recovering/Resolving]
  - Oropharyngeal pain [Recovering/Resolving]
  - Diabetes mellitus [Unknown]
  - Illness [Recovered/Resolved]

NARRATIVE: CASE EVENT DATE: 20250812
